FAERS Safety Report 15226967 (Version 1)
Quarter: 2018Q3

REPORT INFORMATION
  Report Type: Spontaneous
  Country: CZ (occurrence: CZ)
  Receive Date: 20180801
  Receipt Date: 20180801
  Transmission Date: 20181010
  Serious: Yes (Hospitalization, Other)
  Sender: FDA-Public Use
  Company Number: PHHY2018CZ034892

PATIENT
  Age: 70 Year
  Sex: Male

DRUGS (4)
  1. PACLITAXEL. [Suspect]
     Active Substance: PACLITAXEL
     Indication: ADENOCARCINOMA PANCREAS
     Route: 065
  2. ABRAXANE [Concomitant]
     Active Substance: PACLITAXEL
     Indication: PRODUCT USED FOR UNKNOWN INDICATION
     Dosage: ONE IN 14 DAYS
     Route: 065
     Dates: end: 201711
  3. GEMCITABINE [Suspect]
     Active Substance: GEMCITABINE\GEMCITABINE HYDROCHLORIDE
     Dosage: ONE IN 14 DAYS
     Route: 065
     Dates: start: 201604, end: 201711
  4. GEMCITABINE [Suspect]
     Active Substance: GEMCITABINE\GEMCITABINE HYDROCHLORIDE
     Indication: PRODUCT USED FOR UNKNOWN INDICATION
     Dosage: UNK
     Route: 065
     Dates: end: 201402

REACTIONS (12)
  - Metastases to bone [Unknown]
  - Metastases to liver [Unknown]
  - Cardiac failure [Recovered/Resolved]
  - Neurotoxicity [Recovered/Resolved]
  - Metastases to lung [Unknown]
  - Alopecia [Unknown]
  - Pneumonia [Recovered/Resolved]
  - Neutropenia [Unknown]
  - Metastases to lymph nodes [Unknown]
  - Bone marrow failure [Recovered/Resolved]
  - Dehydration [Recovered/Resolved]
  - Renal failure [Recovered/Resolved]

NARRATIVE: CASE EVENT DATE: 201711
